FAERS Safety Report 5366562-5 (Version None)
Quarter: 2007Q2

REPORT INFORMATION
  Report Type: 
  Country: None (occurrence: None)
  Receive Date: 20070622
  Receipt Date: 20070611
  Transmission Date: 20071010
  Serious: Yes (Death)
  Sender: FDA-Public Use
  Company Number: PFIZER INC-2007047942

PATIENT
  Age: 51 Year
  Sex: Female

DRUGS (3)
  1. LYRICA [Suspect]
  2. METHADONE HCL [Suspect]
     Dosage: DAILY DOSE:25MG
  3. KLONOPIN [Suspect]

REACTIONS (1)
  - DEATH [None]
